FAERS Safety Report 4834187-3 (Version None)
Quarter: 2005Q4

REPORT INFORMATION
  Report Type: 
  Country: None (occurrence: None)
  Receive Date: 20051122
  Receipt Date: 20051111
  Transmission Date: 20060501
  Serious: Yes (Other)
  Sender: FDA-Public Use
  Company Number: 2005UW17227

PATIENT
  Sex: Male
  Weight: 81.6 kg

DRUGS (3)
  1. SEROQUEL [Suspect]
     Indication: SLEEP DISORDER
     Route: 048
     Dates: start: 20050101
  2. KLONOPIN [Concomitant]
  3. ZOLOFT [Concomitant]

REACTIONS (2)
  - CARDIAC FAILURE [None]
  - RIGHT VENTRICULAR FAILURE [None]
